FAERS Safety Report 5816355-7 (Version None)
Quarter: 2008Q3

REPORT INFORMATION
  Report Type: 
  Country: None (occurrence: None)
  Receive Date: 20080721
  Receipt Date: 20080114
  Transmission Date: 20090109
  Serious: No
  Sender: FDA-Public Use
  Company Number: US-BAUSCH-2008BL000402

PATIENT
  Age: 63 Year
  Sex: Male

DRUGS (3)
  1. OPCON-A [Suspect]
     Indication: OCULAR HYPERAEMIA
     Route: 047
     Dates: start: 20080101, end: 20080124
  2. OPCON-A [Suspect]
     Indication: EYE IRRITATION
     Route: 047
     Dates: start: 20080101, end: 20080124
  3. NAPROXEN [Concomitant]
     Indication: EXOSTOSIS

REACTIONS (4)
  - CONDITION AGGRAVATED [None]
  - EYE IRRITATION [None]
  - OCULAR HYPERAEMIA [None]
  - PHARMACEUTICAL PRODUCT COMPLAINT [None]
